FAERS Safety Report 6997266-0 (Version None)
Quarter: 2010Q3

REPORT INFORMATION
  Report Type: 
  Country: None (occurrence: None)
  Receive Date: 20100918
  Receipt Date: 20090921
  Transmission Date: 20110219
  Serious: No
  Sender: FDA-Public Use
  Company Number: US-WYE-H11105509

PATIENT
  Sex: Female

DRUGS (1)
  1. ADVIL PM [Suspect]
     Indication: TOOTHACHE
     Dosage: 2 CAPLETS TWICE PER DAY
     Route: 048
     Dates: start: 20090801

REACTIONS (3)
  - MENSTRUATION DELAYED [None]
  - OVERDOSE [None]
  - VAGINAL HAEMORRHAGE [None]
